FAERS Safety Report 24776291 (Version 2)
Quarter: 2025Q1

REPORT INFORMATION
  Report Type: Report from Study
  Country: CA (occurrence: CA)
  Receive Date: 20241226
  Receipt Date: 20250103
  Transmission Date: 20250409
  Serious: Yes (Hospitalization)
  Sender: ABBVIE
  Company Number: CA-ABBVIE-6062726

PATIENT
  Sex: Female

DRUGS (1)
  1. HUMIRA [Suspect]
     Active Substance: ADALIMUMAB
     Indication: Product used for unknown indication
     Route: 058

REACTIONS (4)
  - Lethargy [Unknown]
  - Speech disorder [Unknown]
  - Cardiac disorder [Not Recovered/Not Resolved]
  - Vascular dementia [Not Recovered/Not Resolved]

NARRATIVE: CASE EVENT DATE: 20241201
